FAERS Safety Report 10172213 (Version 1)
Quarter: 2014Q2

REPORT INFORMATION
  Report Type: Spontaneous
  Country: FI (occurrence: FI)
  Receive Date: 20140515
  Receipt Date: 20140515
  Transmission Date: 20141212
  Serious: Yes (Other)
  Sender: FDA-Public Use
  Company Number: FI-B.I. PHARMACEUTICALS,INC./RIDGEFIELD-2014-BI-21135YA

PATIENT
  Age: 85 Year
  Sex: Male

DRUGS (2)
  1. TAMSULOSINA [Suspect]
     Indication: LOWER URINARY TRACT SYMPTOMS
     Dosage: FORMULATION: MODIFIED-RELEASE CAPSULE HARD
     Route: 065
  2. TAMSULOSINA [Suspect]
     Indication: BENIGN PROSTATIC HYPERPLASIA

REACTIONS (3)
  - Cardiovascular disorder [Unknown]
  - Arrhythmia [Unknown]
  - Adverse reaction [Unknown]
